FAERS Safety Report 20207642 (Version 3)
Quarter: 2021Q4

REPORT INFORMATION
  Report Type: Report from Study
  Country: AT (occurrence: AT)
  Receive Date: 20211220
  Receipt Date: 20211230
  Transmission Date: 20220303
  Serious: Yes (Death)
  Sender: FDA-Public Use
  Company Number: AT-002147023-NVSC2021AT263603

PATIENT
  Age: 83 Year

DRUGS (6)
  1. SIMVASTATIN [Suspect]
     Active Substance: SIMVASTATIN
     Indication: Product used for unknown indication
     Dosage: 20 MILLIGRAM, QD (20 MG QD (0-0-1, TABLET))
     Route: 065
  2. CAPMATINIB [Suspect]
     Active Substance: CAPMATINIB
     Indication: Lung neoplasm malignant
     Dosage: 400 MILLIGRAM, QD (200 MG, BID (TABLET))
     Route: 065
  3. CAPMATINIB [Suspect]
     Active Substance: CAPMATINIB
     Dosage: 800 MILLIGRAM, QD (400 MG, BID (TABLET))
     Route: 065
  4. DIGITOXIN [Concomitant]
     Active Substance: DIGITOXIN
     Indication: Product used for unknown indication
     Dosage: 0.07 MILLIGRAM, QD (0.07 MG QD (1-0-0))
     Route: 065
  5. XARELTO [Concomitant]
     Active Substance: RIVAROXABAN
     Indication: Product used for unknown indication
     Dosage: 20 MILLIGRAM, QD (20 MG, QD (1-0-0))
     Route: 065
  6. NEBIVOLOL HYDROCHLORIDE [Concomitant]
     Active Substance: NEBIVOLOL HYDROCHLORIDE
     Indication: Product used for unknown indication
     Dosage: 5 MILLIGRAM (5 MG (0-0-1/2)
     Route: 065

REACTIONS (5)
  - Death [Fatal]
  - Malignant neoplasm progression [Fatal]
  - SARS-CoV-2 test positive [Fatal]
  - Lung neoplasm malignant [Fatal]
  - Oedema peripheral [Recovering/Resolving]

NARRATIVE: CASE EVENT DATE: 20200501
